FAERS Safety Report 4452817-5 (Version None)
Quarter: 2004Q3

REPORT INFORMATION
  Report Type: 
  Country: None (occurrence: None)
  Receive Date: 20040916
  Receipt Date: 20040901
  Transmission Date: 20050211
  Serious: Yes (Hospitalization)
  Sender: FDA-Public Use
  Company Number: 2004-BP-05594YA

PATIENT
  Age: 81 Year
  Sex: Male

DRUGS (8)
  1. HARNAL (TAMSULOSIN) [Suspect]
     Indication: BENIGN PROSTATIC HYPERPLASIA
     Dosage: 0.2 MG (0.2 MG, 0.2 MG QD) PO
     Route: 048
     Dates: start: 20030916, end: 20040116
  2. HARNAL (TAMSULOSIN) [Suspect]
     Indication: BENIGN PROSTATIC HYPERPLASIA
     Dosage: 0.2 MG (0.2 MG, 0.2 MG QD) PO
     Route: 048
     Dates: start: 19980101
  3. AMLODIPINE BESYLATE [Suspect]
     Indication: HYPERTENSION
     Dosage: 5 MG (5 MG OD)  PO
     Route: 048
     Dates: start: 19940101, end: 20040706
  4. TOCOPHERYL NICOTINATE (TOCOPHERYL NICOTINATE) [Concomitant]
  5. SULPIRIDE (SULPIRIDE) [Concomitant]
  6. ZOPICLONE (ZOPICLONE) [Concomitant]
  7. BROTIZOLAM [Concomitant]
  8. BETHANECHOL CHLORIDE (BETHANECHOL CHLORIDE) [Concomitant]

REACTIONS (2)
  - DERMATITIS EXFOLIATIVE [None]
  - TOXIC SKIN ERUPTION [None]
